FAERS Safety Report 21907958 (Version 2)
Quarter: 2023Q1

REPORT INFORMATION
  Report Type: Spontaneous
  Country: JP (occurrence: JP)
  Receive Date: 20230125
  Receipt Date: 20230307
  Transmission Date: 20230417
  Serious: Yes (Other)
  Sender: FDA-Public Use
  Company Number: JP-MH-2023M1007769AA

PATIENT
  Age: 48 Year
  Sex: Male

DRUGS (11)
  1. CARBOPLATIN [Suspect]
     Active Substance: CARBOPLATIN
     Indication: Thymic carcinoma
     Dosage: CYCLICAL
     Route: 065
     Dates: start: 201503
  2. IRINOTECAN [Suspect]
     Active Substance: IRINOTECAN
     Indication: Thymic carcinoma
     Dosage: UNK
     Route: 065
  3. PACLITAXEL [Suspect]
     Active Substance: PACLITAXEL
     Indication: Thymic carcinoma
     Dosage: CYCLICAL
     Route: 065
     Dates: start: 201503
  4. TS-1 [Suspect]
     Active Substance: GIMERACIL\OTERACIL\TEGAFUR
     Indication: Thymic carcinoma
     Dosage: UNK
     Route: 065
  5. GEMCITABINE [Suspect]
     Active Substance: GEMCITABINE
     Indication: Thymic carcinoma
     Dosage: UNK
     Route: 065
  6. DOCETAXEL [Suspect]
     Active Substance: DOCETAXEL
     Indication: Thymic carcinoma
     Dosage: UNK
     Route: 065
  7. AMRUBICIN [Suspect]
     Active Substance: AMRUBICIN
     Indication: Thymic carcinoma
     Dosage: UNK
     Route: 065
  8. VINORELBINE [Suspect]
     Active Substance: VINORELBINE TARTRATE
     Indication: Thymic carcinoma
     Dosage: UNK
     Route: 065
  9. BLEOMYCIN [Suspect]
     Active Substance: BLEOMYCIN SULFATE
     Indication: Thymic carcinoma
     Dosage: INTRAPERICARDIAL BLEOMYCIN INSTILLATION
     Route: 032
  10. LENVATINIB [Concomitant]
     Active Substance: LENVATINIB
     Indication: Thymic carcinoma
     Dosage: 24 MILLIGRAM, QD
     Route: 065
     Dates: start: 201710
  11. LENVATINIB [Concomitant]
     Active Substance: LENVATINIB
     Dosage: 14 MILLIGRAM, QD
     Route: 065

REACTIONS (2)
  - Disease progression [Unknown]
  - Drug ineffective [Unknown]
